FAERS Safety Report 8775849 (Version 2)
Quarter: 2012Q4

REPORT INFORMATION
  Report Type: Report from Study
  Country: DE (occurrence: DE)
  Receive Date: 20120910
  Receipt Date: 20120915
  Transmission Date: 20130627
  Serious: Yes (Death)
  Sender: FDA-Public Use
  Company Number: DE-ROCHE-1090268

PATIENT
  Age: 78 Year
  Sex: Male
  Weight: 68 kg

DRUGS (3)
  1. AVASTIN [Suspect]
     Indication: BRONCHIAL CARCINOMA
     Dosage: last dose pror to SAE: 25/Jun/2012
     Route: 042
     Dates: start: 20120423
  2. GEMZAR [Concomitant]
     Indication: BRONCHIAL CARCINOMA
     Route: 042
     Dates: start: 20120423, end: 20120625
  3. ZOMETA [Concomitant]
     Indication: BRONCHIAL CARCINOMA
     Route: 042

REACTIONS (2)
  - Femoral artery occlusion [Fatal]
  - Renal failure acute [Fatal]
